FAERS Safety Report 16929145 (Version 1)
Quarter: 2019Q4

REPORT INFORMATION
  Report Type: Spontaneous
  Country: ES (occurrence: ES)
  Receive Date: 20191017
  Receipt Date: 20191017
  Transmission Date: 20200122
  Serious: Yes (Other)
  Sender: FDA-Public Use
  Company Number: ES-TEVA-2019-ES-1122481

PATIENT
  Age: 28 Year
  Sex: Male

DRUGS (5)
  1. CEFOTAXIMA [Suspect]
     Active Substance: CEFOTAXIME SODIUM
     Indication: BRONCHITIS
     Dosage: || UNIT DOSAGE FREQUENCY: 6 G-GRAMS DOSAGEPER: 2 G-GRAMS NO SHOTS PER UNIT FREQUENCY: 3 FREQUENCY UN
     Route: 042
     Dates: start: 20100319
  2. PROPOFOL. [Suspect]
     Active Substance: PROPOFOL
     Indication: SEDATION
     Route: 042
     Dates: start: 20100316, end: 20100322
  3. SOMAZINA 1G SOLUCION INYECTABLE , 10 AMPOLLAS [Suspect]
     Active Substance: CITICOLINE
     Dosage: || UNIT DOSAGE FREQUENCY: 4 G-GRAMS DOSAGEPER: 1 G-GRAMS NO SHOTS PER UNIT FREQUENCY: 4 FREQUENCY UN
     Route: 042
     Dates: start: 20100317, end: 20100321
  4. FENITOINA [Suspect]
     Active Substance: PHENYTOIN
     Indication: SEIZURE
     Dosage: || UNIT DOSAGE FREQUENCY: 1 G-GRAMS DOSAGEPER: 0.25 G-GRAMS NO SHOTS PER UNIT FREQUENCY: 4 FREQUENCY
     Route: 042
     Dates: start: 20100316, end: 20100319
  5. VANCOMICINA [Suspect]
     Active Substance: VANCOMYCIN
     Indication: BRONCHITIS
     Dosage: || UNIT DOSAGE FREQUENCY: 2 G-GRAMS DOSAGEPER: 1 G-GRAMS NO SHOTS PER UNIT FREQUENCY: 2 FREQUENCY UN
     Route: 042
     Dates: start: 20100319

REACTIONS (1)
  - Hepatitis [Recovered/Resolved]

NARRATIVE: CASE EVENT DATE: 20100320
